FAERS Safety Report 6048244-X (Version None)
Quarter: 2009Q1

REPORT INFORMATION
  Report Type: 
  Country: None (occurrence: None)
  Receive Date: 20090123
  Receipt Date: 20090113
  Transmission Date: 20090719
  Serious: Yes (Hospitalization)
  Sender: FDA-Public Use
  Company Number: GB-BRISTOL-MYERS SQUIBB COMPANY-14261861

PATIENT

DRUGS (4)
  1. CETUXIMAB [Suspect]
     Indication: COLON CANCER
     Dosage: INITIATED ON 31DEC07
     Route: 042
     Dates: start: 20071231
  2. OXALIPLATIN [Suspect]
     Indication: COLON CANCER
     Dosage: INITIATED ON 31DEC07
     Route: 042
     Dates: start: 20071231
  3. FLUOROURACIL [Suspect]
     Indication: COLON CANCER
     Dosage: INITIATED ON 31DEC07
     Route: 042
     Dates: start: 20071231
  4. FOLINIC ACID [Suspect]
     Indication: COLON CANCER
     Dosage: INITIATED ON 31DEC07
     Route: 042
     Dates: start: 20071231

REACTIONS (3)
  - DIARRHOEA [None]
  - NEUTROPENIA [None]
  - VOMITING [None]
